FAERS Safety Report 11158481 (Version 3)
Quarter: 2015Q3

REPORT INFORMATION
  Report Type: Spontaneous
  Country: AU (occurrence: AU)
  Receive Date: 20150603
  Receipt Date: 20150916
  Transmission Date: 20151125
  Serious: Yes (Hospitalization, Other)
  Sender: FDA-Public Use
  Company Number: AU-SA-2015SA064733

PATIENT
  Sex: Male

DRUGS (1)
  1. FABRAZYME [Suspect]
     Active Substance: AGALSIDASE BETA
     Indication: FABRY^S DISEASE
     Route: 041
     Dates: start: 201409

REACTIONS (8)
  - Neutropenia [Unknown]
  - Removal of foreign body [Recovered/Resolved]
  - Diarrhoea [Unknown]
  - Wound secretion [Recovering/Resolving]
  - Wound [Recovering/Resolving]
  - Nausea [Unknown]
  - Lethargy [Unknown]
  - Wound complication [Recovering/Resolving]

NARRATIVE: CASE EVENT DATE: 2015
